FAERS Safety Report 4781699-7 (Version None)
Quarter: 2005Q3

REPORT INFORMATION
  Report Type: 
  Country: None (occurrence: None)
  Receive Date: 20050927
  Receipt Date: 20050916
  Transmission Date: 20060218
  Serious: Yes (Hospitalization)
  Sender: FDA-Public Use
  Company Number: 2005AD000100

PATIENT
  Age: 43 Year
  Sex: Male

DRUGS (2)
  1. KEFLEX [Suspect]
     Indication: LIMB INJURY
     Dosage: 4 + 2 GM; QD
     Dates: start: 20050906, end: 20050909
  2. KEFLEX [Suspect]
     Indication: LIMB INJURY
     Dosage: 4 + 2 GM; QD
     Dates: start: 20050909, end: 20050910

REACTIONS (5)
  - DIZZINESS [None]
  - DRUG HYPERSENSITIVITY [None]
  - MALAISE [None]
  - RASH ERYTHEMATOUS [None]
  - RASH GENERALISED [None]
